FAERS Safety Report 12693756 (Version 2)
Quarter: 2016Q3

REPORT INFORMATION
  Report Type: Spontaneous
  Country: PT (occurrence: PT)
  Receive Date: 20160829
  Receipt Date: 20160920
  Transmission Date: 20161109
  Serious: Yes (Hospitalization)
  Sender: FDA-Public Use
  Company Number: PT-PFIZER INC-2016399444

PATIENT
  Age: 86 Year
  Sex: Male

DRUGS (12)
  1. METFORMIN [Concomitant]
     Active Substance: METFORMIN HYDROCHLORIDE
     Indication: DIABETES MELLITUS
     Dosage: 850 MG, 2X/DAY
     Route: 048
  2. NAPROXEN. [Concomitant]
     Active Substance: NAPROXEN
     Indication: POLYARTHRITIS
     Dosage: 1 DF, AS NEEDED
     Route: 048
  3. CALCIMED D3 [Concomitant]
     Active Substance: CALCIUM CARBONATE\CHOLECALCIFEROL
     Dosage: 1 DF, 1X/DAY
     Route: 065
  4. LEPICORTINOLO [Concomitant]
     Active Substance: PREDNISOLONE
     Indication: POLYARTHRITIS
     Dosage: 7.5 MG, 1X/DAY
     Route: 048
     Dates: start: 20160421
  5. SINVASTATINA [Concomitant]
     Active Substance: SIMVASTATIN
     Indication: DYSLIPIDAEMIA
     Dosage: 20 MG, 1X/DAY
     Route: 048
  6. DUAGEN [Concomitant]
     Active Substance: DUTASTERIDE
     Indication: BENIGN PROSTATIC HYPERPLASIA
     Dosage: 0.5 MG, 1X/DAY
     Route: 048
  7. FOLICIL [Concomitant]
     Active Substance: FOLIC ACID
     Dosage: 5 MG, WEEKLY
     Route: 048
     Dates: start: 20160421, end: 201604
  8. LEDERTREXATO [Suspect]
     Active Substance: METHOTREXATE SODIUM
     Indication: POLYARTHRITIS
     Dosage: 10 MG, WEEKLY
     Route: 048
     Dates: start: 20160421, end: 201605
  9. XALATAN [Concomitant]
     Active Substance: LATANOPROST
     Dosage: 1 DF, 1X/DAY (1 DROP IN EACH EYE)
  10. GLUCOMED [Concomitant]
     Dosage: 625 MG, 2X/DAY
     Route: 048
  11. LEXOTAN [Concomitant]
     Active Substance: BROMAZEPAM
     Dosage: 1.5 MG, 1X/DAY
     Route: 048
  12. TRITICUM [Concomitant]
     Dosage: 100 MG, 1X/DAY
     Route: 048

REACTIONS (13)
  - Alveolitis allergic [Recovered/Resolved]
  - Lung infiltration [Recovered/Resolved]
  - Blood bicarbonate increased [Recovered/Resolved]
  - Fatigue [Recovered/Resolved]
  - Haemoglobin decreased [Recovered/Resolved]
  - Asthenia [Recovered/Resolved]
  - Blood pH increased [Recovered/Resolved]
  - Decreased appetite [Recovered/Resolved]
  - Condition aggravated [Recovered/Resolved]
  - PO2 decreased [Recovered/Resolved]
  - Productive cough [Recovered/Resolved]
  - C-reactive protein increased [Recovered/Resolved]
  - Sputum purulent [Recovered/Resolved]

NARRATIVE: CASE EVENT DATE: 201604
